FAERS Safety Report 18388259 (Version 2)
Quarter: 2020Q4

REPORT INFORMATION
  Report Type: Report from Study
  Country: NO (occurrence: NO)
  Receive Date: 20201015
  Receipt Date: 20201225
  Transmission Date: 20210114
  Serious: No
  Sender: FDA-Public Use
  Company Number: NO-SHIRE-NO201850869

PATIENT

DRUGS (23)
  1. TEDUGLUTIDE [Suspect]
     Active Substance: TEDUGLUTIDE
     Indication: SHORT-BOWEL SYNDROME
     Dosage: UNK
     Route: 065
     Dates: start: 20180209
  2. TEDUGLUTIDE [Suspect]
     Active Substance: TEDUGLUTIDE
     Dosage: 1.8 MILLIGRAM
     Route: 065
     Dates: start: 20200603
  3. TEDUGLUTIDE [Suspect]
     Active Substance: TEDUGLUTIDE
     Dosage: 1.8 MILLIGRAM
     Route: 065
     Dates: start: 20200603
  4. URSOFALK [Concomitant]
     Active Substance: URSODIOL
     Indication: LIVER DISORDER
  5. NORDITROPIN [Concomitant]
     Active Substance: SOMATROPIN
     Indication: GROWTH DISORDER
  6. TEDUGLUTIDE [Suspect]
     Active Substance: TEDUGLUTIDE
     Dosage: 1.4 MILLIGRAM
     Route: 065
     Dates: start: 20180209, end: 20200602
  7. TEDUGLUTIDE [Suspect]
     Active Substance: TEDUGLUTIDE
     Dosage: 1.8 MILLIGRAM
     Route: 065
     Dates: start: 20200603
  8. HYDROXOCOBALAMIN [Concomitant]
     Active Substance: HYDROXOCOBALAMIN
     Indication: VITAMIN B12 DEFICIENCY
  9. SOMATROPIN. [Concomitant]
     Active Substance: SOMATROPIN
     Indication: GROWTH HORMONE DEFICIENCY
  10. AMOXICILLIN. [Concomitant]
     Active Substance: AMOXICILLIN
     Indication: ORAL BACTERIAL INFECTION
  11. TEDUGLUTIDE [Suspect]
     Active Substance: TEDUGLUTIDE
     Indication: SHORT-BOWEL SYNDROME
     Dosage: UNK
     Route: 065
     Dates: start: 20180209
  12. TEDUGLUTIDE [Suspect]
     Active Substance: TEDUGLUTIDE
     Indication: SHORT-BOWEL SYNDROME
     Dosage: UNK
     Route: 065
     Dates: start: 20180209
  13. TEDUGLUTIDE [Suspect]
     Active Substance: TEDUGLUTIDE
     Dosage: 1.4 MILLIGRAM
     Route: 065
     Dates: start: 20180209, end: 20200602
  14. TEDUGLUTIDE [Suspect]
     Active Substance: TEDUGLUTIDE
     Indication: SHORT-BOWEL SYNDROME
     Dosage: UNK
     Route: 065
     Dates: start: 20180209
  15. TEDUGLUTIDE [Suspect]
     Active Substance: TEDUGLUTIDE
     Dosage: 1.4 MILLIGRAM
     Route: 065
     Dates: start: 20180209, end: 20200602
  16. TEDUGLUTIDE [Suspect]
     Active Substance: TEDUGLUTIDE
     Dosage: 1.4 MILLIGRAM
     Route: 065
     Dates: start: 20180209, end: 20200602
  17. ESOMEPRAZOLE. [Concomitant]
     Active Substance: ESOMEPRAZOLE MAGNESIUM
     Indication: HYPERTENSION
  18. LOPERAMID [Concomitant]
     Active Substance: LOPERAMIDE
     Indication: DIARRHOEA
  19. METRONIDAZOLE. [Concomitant]
     Active Substance: METRONIDAZOLE
     Indication: ORAL BACTERIAL INFECTION
  20. GENTAMYCIN H [Concomitant]
     Indication: ORAL BACTERIAL INFECTION
  21. OMACOR [Concomitant]
     Active Substance: OMEGA-3-ACID ETHYL ESTERS
     Indication: MOUTH ULCERATION
  22. TEDUGLUTIDE [Suspect]
     Active Substance: TEDUGLUTIDE
     Dosage: 1.8 MILLIGRAM
     Route: 065
     Dates: start: 20200603
  23. AUGMENTINE [AMOXICILLIN;CLAVULANIC ACID] [Concomitant]
     Active Substance: AMOXICILLIN\CLAVULANIC ACID
     Indication: OVERGROWTH BACTERIAL

REACTIONS (2)
  - Melanocytic naevus [Not Recovered/Not Resolved]
  - Blood albumin decreased [Not Recovered/Not Resolved]

NARRATIVE: CASE EVENT DATE: 20180530
